FAERS Safety Report 14731905 (Version 3)
Quarter: 2021Q1

REPORT INFORMATION
  Report Type: Other
  Country: CO (occurrence: CO)
  Receive Date: 20180408
  Receipt Date: 20210316
  Transmission Date: 20210419
  Serious: Yes (Other)
  Sender: FDA-Public Use
  Company Number: CO-ROCHE-2068632

PATIENT
  Age: 34 Year
  Sex: Female

DRUGS (6)
  1. BILASTINE [Concomitant]
     Active Substance: BILASTINE
     Indication: IDIOPATHIC URTICARIA
     Route: 065
  2. XOLAIR [Suspect]
     Active Substance: OMALIZUMAB
     Indication: IDIOPATHIC URTICARIA
     Route: 058
     Dates: end: 202012
  3. XOLAIR [Suspect]
     Active Substance: OMALIZUMAB
     Route: 058
     Dates: start: 20210226
  4. XOLAIR [Suspect]
     Active Substance: OMALIZUMAB
     Indication: CHRONIC SPONTANEOUS URTICARIA
     Route: 058
  5. DEFLAZACORT [Suspect]
     Active Substance: DEFLAZACORT
     Indication: PRODUCT USED FOR UNKNOWN INDICATION
     Dosage: 4 YEARS AND A HALF AGO
     Route: 065
  6. XOLAIR [Suspect]
     Active Substance: OMALIZUMAB
     Route: 058
     Dates: start: 201610

REACTIONS (13)
  - Malaise [Unknown]
  - Ill-defined disorder [Recovered/Resolved]
  - Immune system disorder [Unknown]
  - Pain [Recovered/Resolved]
  - Influenza [Unknown]
  - Immunosuppression [Recovered/Resolved]
  - Pyrexia [Recovered/Resolved]
  - Hypothyroidism [Unknown]
  - Inappropriate schedule of product administration [Unknown]
  - Secretion discharge [Not Recovered/Not Resolved]
  - Bronchitis [Unknown]
  - Viral infection [Recovered/Resolved]
  - Arthralgia [Recovered/Resolved]

NARRATIVE: CASE EVENT DATE: 20171208
